FAERS Safety Report 21707132 (Version 1)
Quarter: 2022Q4

REPORT INFORMATION
  Report Type: Spontaneous
  Country: US (occurrence: US)
  Receive Date: 20221209
  Receipt Date: 20221209
  Transmission Date: 20230113
  Serious: Yes (Life-Threatening, Hospitalization)
  Sender: FDA-Public Use
  Company Number: US-PFIZER INC-202201359467

PATIENT
  Age: 77 Year
  Sex: Female
  Weight: 82.55 kg

DRUGS (2)
  1. XELJANZ [Suspect]
     Active Substance: TOFACITINIB CITRATE
     Indication: Rheumatoid arthritis
     Dosage: 1 DF, 2X/DAY
     Route: 048
     Dates: end: 20221203
  2. SULINDAC [Concomitant]
     Active Substance: SULINDAC
     Indication: Rheumatoid arthritis
     Dosage: UNK, 2X/DAY
     Route: 048

REACTIONS (2)
  - Pneumonia streptococcal [Unknown]
  - Influenza [Unknown]

NARRATIVE: CASE EVENT DATE: 20220101
